FAERS Safety Report 10611621 (Version 2)
Quarter: 2015Q2

REPORT INFORMATION
  Report Type: Report from Study
  Country: TR (occurrence: TR)
  Receive Date: 20141126
  Receipt Date: 20150528
  Transmission Date: 20150821
  Serious: Yes (Hospitalization, Other)
  Sender: FDA-Public Use
  Company Number: TR-NOVOPROD-430132

PATIENT
  Sex: Female
  Weight: 2.6 kg

DRUGS (3)
  1. CLEXANE [Concomitant]
     Active Substance: ENOXAPARIN SODIUM
     Indication: PLATELET AGGREGATION
     Dosage: 1X1
     Route: 064
     Dates: start: 20131218, end: 20140723
  2. AKSEF                              /00454602/ [Concomitant]
     Indication: INFECTION
     Dosage: 1X1
     Route: 064
     Dates: start: 20131218, end: 20140723
  3. NOVORAPID [Suspect]
     Active Substance: INSULIN ASPART
     Indication: GESTATIONAL DIABETES
     Dosage: 12 U, QD
     Route: 064
     Dates: start: 20140630, end: 20140723

REACTIONS (2)
  - Foetal exposure during pregnancy [Recovered/Resolved]
  - Premature baby [Recovered/Resolved]

NARRATIVE: CASE EVENT DATE: 20140630
